FAERS Safety Report 11231808 (Version 1)
Quarter: 2015Q2

REPORT INFORMATION
  Report Type: Spontaneous
  Country: CH (occurrence: None)
  Receive Date: 20150630
  Receipt Date: 20150630
  Transmission Date: 20150821
  Serious: Yes (Hospitalization)
  Sender: FDA-Public Use
  Company Number: None

PATIENT
  Age: 12 Year
  Sex: Male
  Weight: 28 kg

DRUGS (5)
  1. VINCRISTINE SULFATE. [Suspect]
     Active Substance: VINCRISTINE SULFATE
     Dates: end: 20150611
  2. LEVETIRACETAM. [Concomitant]
     Active Substance: LEVETIRACETAM
  3. PEG-L-ASPARAGINASE [Suspect]
     Active Substance: PEGASPARGASE
     Dates: end: 20150607
  4. METOCLOPRAMIDE. [Concomitant]
     Active Substance: METOCLOPRAMIDE
  5. PREDNISONE. [Suspect]
     Active Substance: PREDNISONE
     Dates: end: 20150618

REACTIONS (8)
  - Septic shock [None]
  - Acute kidney injury [None]
  - Haemorrhagic necrotic pancreatitis [None]
  - Multi-organ failure [None]
  - Cytopenia [None]
  - Hypovolaemic shock [None]
  - Liver disorder [None]
  - Disseminated intravascular coagulation [None]

NARRATIVE: CASE EVENT DATE: 20150618
